FAERS Safety Report 5096566-1 (Version None)
Quarter: 2006Q3

REPORT INFORMATION
  Report Type: 
  Country: None (occurrence: None)
  Receive Date: 20060830
  Receipt Date: 20060818
  Transmission Date: 20061208
  Serious: Yes (Other)
  Sender: FDA-Public Use
  Company Number: 2006100713

PATIENT
  Sex: Female

DRUGS (1)
  1. LYRICA [Suspect]
     Indication: OSTEOARTHRITIS
     Dosage: 150 MG (75 MG, 2 IN 1 D) ORAL
     Route: 048
     Dates: start: 20060801

REACTIONS (3)
  - GAIT DISTURBANCE [None]
  - MUSCULOSKELETAL STIFFNESS [None]
  - PAIN [None]
